FAERS Safety Report 26108470 (Version 2)
Quarter: 2025Q4

REPORT INFORMATION
  Report Type: Spontaneous
  Country: US (occurrence: US)
  Receive Date: 20251201
  Receipt Date: 20251203
  Transmission Date: 20260117
  Serious: Yes (Hospitalization, Other)
  Sender: BELCHER PHARMACEUTICALS
  Company Number: US-BPI LABS, LLC-2025US004411

PATIENT

DRUGS (2)
  1. SEMAGLUTIDE [Suspect]
     Active Substance: SEMAGLUTIDE
     Indication: Product used for unknown indication
     Dosage: STRENGTH: 5 MG/2 ML (2.5 MG/ML)
     Route: 065
  2. SERTRALINE [Concomitant]
     Active Substance: SERTRALINE HYDROCHLORIDE
     Indication: Product used for unknown indication
     Dosage: UNK
     Route: 065

REACTIONS (3)
  - Nephrolithiasis [Recovered/Resolved]
  - Lyme disease [Unknown]
  - Dehydration [Unknown]

NARRATIVE: CASE EVENT DATE: 20250601
